FAERS Safety Report 9729794 (Version 2)
Quarter: 2013Q4

REPORT INFORMATION
  Report Type: Spontaneous
  Country: US (occurrence: US)
  Receive Date: 20131204
  Receipt Date: 20131204
  Transmission Date: 20140711
  Serious: No
  Sender: FDA-Public Use
  Company Number: US-GILEAD-2009-0021848

PATIENT
  Sex: Female
  Weight: 88.45 kg

DRUGS (15)
  1. LETAIRIS [Suspect]
     Indication: PULMONARY ARTERIAL HYPERTENSION
     Route: 048
     Dates: start: 20090402
  2. DIGOXIN [Concomitant]
  3. MIDODRINE HCL [Concomitant]
  4. ZETIA [Concomitant]
  5. SYNTHROID [Concomitant]
  6. PROMETHAZINE [Concomitant]
  7. CEPHALEXIN [Concomitant]
  8. LORTAB [Concomitant]
  9. BUSPAR [Concomitant]
  10. NEXIUM [Concomitant]
  11. SENSIPAR [Concomitant]
  12. RENVELA [Concomitant]
  13. MARINOL [Concomitant]
  14. NEPHRO-VITE RX [Concomitant]
  15. VITAMIN E [Concomitant]

REACTIONS (3)
  - Asthenia [Unknown]
  - Nausea [Unknown]
  - Fatigue [Unknown]
